FAERS Safety Report 16671241 (Version 2)
Quarter: 2019Q4

REPORT INFORMATION
  Report Type: Report from Study
  Country: None (occurrence: CL)
  Receive Date: 20190805
  Receipt Date: 20191031
  Transmission Date: 20200122
  Serious: Yes (Other)
  Sender: FDA-Public Use
  Company Number: CL-ABBVIE-19K-034-2876674-00

PATIENT
  Age: 22 Year
  Sex: Female

DRUGS (2)
  1. HUMIRA [Suspect]
     Active Substance: ADALIMUMAB
     Indication: JUVENILE IDIOPATHIC ARTHRITIS
     Route: 058
     Dates: start: 20110201, end: 20190715
  2. HUMIRA [Suspect]
     Active Substance: ADALIMUMAB
     Route: 058
     Dates: start: 20190801

REACTIONS (6)
  - Gingival bleeding [Unknown]
  - Contusion [Unknown]
  - Scoliosis [Recovered/Resolved]
  - Coagulopathy [Recovering/Resolving]
  - Epistaxis [Unknown]
  - Menorrhagia [Unknown]

NARRATIVE: CASE EVENT DATE: 201905
